FAERS Safety Report 8042139-8 (Version None)
Quarter: 2012Q1

REPORT INFORMATION
  Report Type: 
  Country: None (occurrence: None)
  Receive Date: 20120112
  Receipt Date: 20120111
  Transmission Date: 20120608
  Serious: Yes (Life-Threatening)
  Sender: FDA-Public Use
  Company Number: IT-SANOFI-AVENTIS-2011SA085111

PATIENT
  Age: 14 Year
  Sex: Male

DRUGS (8)
  1. ACETAMINOPHEN [Concomitant]
     Route: 065
  2. AUGMENTIN '125' [Concomitant]
     Route: 065
  3. PREDNISONE TAB [Concomitant]
     Route: 065
  4. ETHAMBUTOL HYDROCHLORIDE [Suspect]
     Route: 048
     Dates: start: 20111027, end: 20111124
  5. RIFADIN [Suspect]
     Route: 048
     Dates: start: 20111027, end: 20111124
  6. ALLOPURINOL [Concomitant]
     Route: 065
  7. PYRAZINAMIDE [Suspect]
     Route: 048
     Dates: start: 20111027, end: 20111124
  8. ISONIAZID [Suspect]
     Route: 048
     Dates: start: 20111027, end: 20111124

REACTIONS (1)
  - ACUTE HEPATIC FAILURE [None]
